FAERS Safety Report 18415337 (Version 3)
Quarter: 2021Q2

REPORT INFORMATION
  Report Type: Spontaneous
  Country: SI (occurrence: SI)
  Receive Date: 20201022
  Receipt Date: 20210616
  Transmission Date: 20210717
  Serious: Yes (Other)
  Sender: FDA-Public Use
  Company Number: SI-ROCHE-2700584

PATIENT
  Sex: Female

DRUGS (16)
  1. FULVESTRANT. [Suspect]
     Active Substance: FULVESTRANT
     Indication: PRODUCT USED FOR UNKNOWN INDICATION
     Route: 065
     Dates: start: 201803
  2. CALCIUM CARBONATE. [Concomitant]
     Active Substance: CALCIUM CARBONATE
     Indication: PRODUCT USED FOR UNKNOWN INDICATION
     Dosage: 1 G
     Route: 065
  3. CYCLOPHOSPHAMIDE. [Concomitant]
     Active Substance: CYCLOPHOSPHAMIDE
  4. FULVESTRANT. [Suspect]
     Active Substance: FULVESTRANT
     Dosage: UNK
     Route: 065
     Dates: start: 202010
  5. ZOLEDRONIC ACID. [Suspect]
     Active Substance: ZOLEDRONIC ACID
     Dosage: Q 3W
     Route: 065
     Dates: start: 202102
  6. TAMOXIFEN [Concomitant]
     Active Substance: TAMOXIFEN
  7. GLUCOPHAGE [Concomitant]
     Active Substance: METFORMIN HYDROCHLORIDE
     Indication: PRODUCT USED FOR UNKNOWN INDICATION
     Dosage: 500 MG, BID (2 X IN THE EVENING)
     Dates: start: 20210330
  8. METFORMIN [Concomitant]
     Active Substance: METFORMIN HYDROCHLORIDE
  9. ZOLEDRONIC ACID. [Suspect]
     Active Substance: ZOLEDRONIC ACID
     Indication: PRODUCT USED FOR UNKNOWN INDICATION
     Dosage: UNK
     Route: 065
     Dates: start: 201803
  10. PALBOCICLIB [Concomitant]
     Active Substance: PALBOCICLIB
  11. CAPECITABINE. [Suspect]
     Active Substance: CAPECITABINE
     Indication: PRODUCT USED FOR UNKNOWN INDICATION
     Dosage: UNK
     Route: 065
  12. DOXORUBICIN [Suspect]
     Active Substance: DOXORUBICIN
     Indication: PRODUCT USED FOR UNKNOWN INDICATION
     Dosage: Q 3W FOR 6 CYCLES
     Route: 065
     Dates: start: 202102
  13. GOSERELIN [Concomitant]
     Active Substance: GOSERELIN
  14. LETROZOL [Suspect]
     Active Substance: LETROZOLE
     Indication: PRODUCT USED FOR UNKNOWN INDICATION
     Dosage: UNK
     Route: 065
  15. GLUCOPHAGE [Concomitant]
     Active Substance: METFORMIN HYDROCHLORIDE
     Dosage: 500 MG, QD (1 X IN THE EVENING)
     Route: 065
     Dates: start: 20210319, end: 20210330
  16. PLIVIT D3 [Concomitant]
     Active Substance: CHOLECALCIFEROL
     Indication: PRODUCT USED FOR UNKNOWN INDICATION
     Dosage: 50 DRP/GTT, QW
     Route: 065

REACTIONS (8)
  - Metastases to liver [Recovered/Resolved]
  - Glycosylated haemoglobin increased [Unknown]
  - Osteonecrosis of jaw [Unknown]
  - Breast cancer metastatic [Recovered/Resolved]
  - Disease progression [Unknown]
  - Jaw disorder [Unknown]
  - Metastases to bone [Unknown]
  - Rash macular [Unknown]

NARRATIVE: CASE EVENT DATE: 201901
